FAERS Safety Report 4280313-7 (Version None)
Quarter: 2004Q1

REPORT INFORMATION
  Report Type: 
  Country: None (occurrence: None)
  Receive Date: 20040126
  Receipt Date: 20040109
  Transmission Date: 20041129
  Serious: Yes (Life-Threatening, Hospitalization)
  Sender: FDA-Public Use
  Company Number: EM2004-0008

PATIENT
  Age: 60 Year

DRUGS (3)
  1. PROLEUKIN [Suspect]
     Indication: NEOPLASM MALIGNANT
     Dosage: 36 MIU, SUBCUTAN.
     Route: 058
     Dates: end: 20040107
  2. ZOFRAN [Concomitant]
  3. PARACETAMOL (PARACETAMOL) [Concomitant]

REACTIONS (6)
  - ARRHYTHMIA [None]
  - CIRCULATORY COLLAPSE [None]
  - DEHYDRATION [None]
  - DIARRHOEA [None]
  - PYREXIA [None]
  - VOMITING [None]
